FAERS Safety Report 19248396 (Version 5)
Quarter: 2022Q2

REPORT INFORMATION
  Report Type: Spontaneous
  Country: FR (occurrence: FR)
  Receive Date: 20210512
  Receipt Date: 20220616
  Transmission Date: 20220721
  Serious: Yes (Hospitalization, Other)
  Sender: FDA-Public Use
  Company Number: FR-AMERICAN REGENT INC-2021001185

PATIENT
  Sex: Male

DRUGS (15)
  1. FERINJECT [Suspect]
     Active Substance: FERRIC CARBOXYMALTOSE
     Indication: Product used for unknown indication
     Dosage: UNK, GESTATION WEEK 11
     Route: 064
  2. FERINJECT [Suspect]
     Active Substance: FERRIC CARBOXYMALTOSE
     Dosage: UNK, GESTATION WEEK 34
     Route: 064
  3. VENOFER [Suspect]
     Active Substance: IRON SUCROSE
     Indication: Product used for unknown indication
     Dosage: UNK, GESTATION WEEK 11
     Route: 064
  4. VENOFER [Suspect]
     Active Substance: IRON SUCROSE
     Dosage: UNK, GESTATION WEEK 34
     Route: 064
  5. CLAIRYG [Suspect]
     Active Substance: HUMAN IMMUNOGLOBULIN G
     Indication: Product used for unknown indication
     Dosage: 1 GRAM PER KILOGRAM 1/WEEK (1 GRAM PER KILOGRAM,1 IN 1 WK)
     Route: 064
  6. CLAIRYG [Suspect]
     Active Substance: HUMAN IMMUNOGLOBULIN G
     Dosage: 2 GRAM PER KILOGRAM, 1/WEEK AT 11 WEEK OF GESTATIONAL AGE (2 GRAM PER  KILOGRAM,1 IN 1 WK)
     Route: 064
  7. CLAIRYG [Suspect]
     Active Substance: HUMAN IMMUNOGLOBULIN G
     Dosage: 2 G/KG 1/WEEK AT 12-33 WEEK OF GESTATIONAL AGE (2 GRAM PER KILOGRAM,1 IN 1 WK)
     Route: 064
  8. CLAIRYG [Suspect]
     Active Substance: HUMAN IMMUNOGLOBULIN G
     Dosage: 2 G/KG 1/WEEK AT 34 WEEK OF GESTATIONAL AGE (2 GRAM PER KILOGRAM,1 IN 1 WK)
     Route: 064
  9. FOLIC ACID [Suspect]
     Active Substance: FOLIC ACID
     Indication: Product used for unknown indication
     Dosage: 5 MILLIGRAM, QD FROM 11 WEEKS GESTATION (5 MG,1 IN 1 D)
     Route: 064
  10. PRIVIGEN [Suspect]
     Active Substance: HUMAN IMMUNOGLOBULIN G
     Indication: Product used for unknown indication
     Dosage: 1.5 GRAM PER KILOGRAM, QW FROM GESTATIONAL WEEKS 7 - 10(1.5 GRAM PER KILOGRAM,1 IN 1 WK)
     Route: 064
  11. ARANESP [Suspect]
     Active Substance: DARBEPOETIN ALFA
     Indication: Product used for unknown indication
     Dosage: 20 MICROGRAM, QW FROM 11 WEEKS GESTATION (20 MCG,1 IN 1 WK)
     Route: 064
  12. ARANESP [Suspect]
     Active Substance: DARBEPOETIN ALFA
     Dosage: PROGESSIVE INCREASE TO 160 MICROGRAM PER WEEK AT 36 WEEKS (160 MCG,1 IN 1 WK)
     Route: 064
  13. ASPIRIN [Suspect]
     Active Substance: ASPIRIN
     Indication: Product used for unknown indication
     Dosage: 100 MILLIGRAM, QD (100 MG,1 IN 1 D)
     Route: 064
  14. IMMUNE GLOBULIN NOS [Suspect]
     Active Substance: IMMUNE GLOBULIN NOS
     Indication: Product used for unknown indication
     Dosage: UNK
     Route: 064
  15. POTASSIUM GLUCONATE [Suspect]
     Active Substance: POTASSIUM GLUCONATE
     Indication: Product used for unknown indication
     Dosage: UNK
     Route: 064

REACTIONS (4)
  - Neonatal respiratory distress [Recovered/Resolved]
  - Foetal exposure during pregnancy [Unknown]
  - Hyperbilirubinaemia neonatal [Unknown]
  - Haemoglobin decreased [Unknown]
